FAERS Safety Report 7924499-9 (Version None)
Quarter: 2011Q4

REPORT INFORMATION
  Report Type: 
  Country: None (occurrence: None)
  Receive Date: 20111117
  Receipt Date: 20110323
  Transmission Date: 20120403
  Serious: No
  Sender: FDA-Public Use
  Company Number: US-AMGEN-USASP2011015803

PATIENT
  Age: 25 Year
  Sex: Female
  Weight: 83.447 kg

DRUGS (15)
  1. NASONEX [Concomitant]
     Dosage: 50 A?G, UNK
  2. LORAZEPAM [Concomitant]
     Dosage: .5 MG, UNK
  3. MULTIVITAMIN                       /00097801/ [Concomitant]
  4. TIMOLOL MALEATE [Concomitant]
     Dosage: 5 MG, UNK
  5. ENBREL [Suspect]
     Indication: PRODUCT USED FOR UNKNOWN INDICATION
     Dosage: 50 MG, QWK
     Route: 058
  6. LAMICTAL [Concomitant]
     Dosage: 25 MG, UNK
  7. PLAQUENIL [Concomitant]
     Dosage: 200 MG, UNK
  8. LIBRAX [Concomitant]
  9. MILNACIPRAN HYDROCHLORIDE [Concomitant]
     Dosage: 12.5 MG, UNK
  10. ALBUTEROL [Concomitant]
     Dosage: .083 %, UNK
  11. HYDROCHLOROTHIAZIDE [Concomitant]
     Dosage: 12.5 MG, UNK
  12. VITAMIN D [Concomitant]
     Dosage: 400 MG, UNK
  13. ASPIRIN [Concomitant]
     Dosage: 81 MG, UNK
  14. MORPHINE SULFATE [Concomitant]
     Dosage: 30 MG, UNK
  15. HYDROXYZINE HCL [Concomitant]
     Dosage: 10 MG, UNK

REACTIONS (1)
  - PNEUMONIA BACTERIAL [None]
